FAERS Safety Report 9298274 (Version 1)
Quarter: 2013Q2

REPORT INFORMATION
  Report Type: Report from Study
  Country: CA (occurrence: CA)
  Receive Date: 20130520
  Receipt Date: 20130520
  Transmission Date: 20140414
  Serious: Yes (Other)
  Sender: FDA-Public Use
  Company Number: CA-JNJFOC-20130510448

PATIENT
  Sex: Female
  Weight: 71.2 kg

DRUGS (5)
  1. REMICADE [Suspect]
     Indication: CROHN^S DISEASE
     Dosage: 19TH INFUSION
     Route: 042
     Dates: start: 20130510
  2. REMICADE [Suspect]
     Indication: CROHN^S DISEASE
     Route: 042
     Dates: start: 20101119
  3. SYNTHROID [Concomitant]
     Indication: HYPOTHYROIDISM
     Route: 065
  4. VITAMIN B12 [Concomitant]
     Route: 065
  5. REMERON [Concomitant]
     Indication: DEPRESSION
     Route: 065

REACTIONS (1)
  - Cyst [Recovered/Resolved]
